FAERS Safety Report 12623475 (Version 2)
Quarter: 2016Q3

REPORT INFORMATION
  Report Type: Spontaneous
  Country: GB (occurrence: GB)
  Receive Date: 20160804
  Receipt Date: 20160915
  Transmission Date: 20161109
  Serious: Yes (Other)
  Sender: FDA-Public Use
  Company Number: GB-ABBOTT MEDICAL OPTICS-1055891

PATIENT
  Sex: Female

DRUGS (1)
  1. BLINK TEARS [Suspect]
     Active Substance: POLYETHYLENE GLYCOL 400
     Indication: DRY EYE
     Route: 047

REACTIONS (3)
  - Corneal infection [Recovered/Resolved]
  - Dry eye [Recovered/Resolved]
  - Vision blurred [Recovered/Resolved]
